FAERS Safety Report 12428888 (Version 1)
Quarter: 2016Q2

REPORT INFORMATION
  Report Type: Spontaneous
  Country: US (occurrence: US)
  Receive Date: 20160602
  Receipt Date: 20160602
  Transmission Date: 20160815
  Serious: Yes (Death)
  Sender: FDA-Public Use
  Company Number: GXBR2016US001971

PATIENT
  Age: 68 Year
  Sex: Male

DRUGS (1)
  1. AMIODARONE HYDROCHLORIDE. [Suspect]
     Active Substance: AMIODARONE HYDROCHLORIDE
     Indication: ATRIAL FIBRILLATION
     Dosage: 200 MG, UNK
     Route: 048
     Dates: end: 2006

REACTIONS (12)
  - Asthenia [Unknown]
  - Irritability [Unknown]
  - Disturbance in attention [Unknown]
  - Pulmonary toxicity [Fatal]
  - Dyspnoea [Fatal]
  - Fatigue [Unknown]
  - Restlessness [Unknown]
  - Depression [Unknown]
  - Lung infiltration [Fatal]
  - Nervousness [Unknown]
  - Wheezing [Fatal]
  - Cough [Fatal]
